FAERS Safety Report 5940311-1 (Version None)
Quarter: 2008Q4

REPORT INFORMATION
  Report Type: 
  Country: None (occurrence: None)
  Receive Date: 20081104
  Receipt Date: 20081031
  Transmission Date: 20090506
  Serious: Yes (Hospitalization)
  Sender: FDA-Public Use
  Company Number: A0754683A

PATIENT
  Age: 50 Year
  Sex: Female

DRUGS (12)
  1. COREG [Suspect]
     Indication: CARDIAC FAILURE CONGESTIVE
     Dosage: 12.5MG TWICE PER DAY
     Route: 048
     Dates: start: 19900101
  2. CARVEDILOL [Suspect]
     Indication: CARDIAC FAILURE CONGESTIVE
     Route: 048
  3. K-DUR [Concomitant]
     Dosage: 20MEQ PER DAY
  4. LANOXIN [Concomitant]
     Dosage: .25MG PER DAY
     Route: 048
  5. LASIX [Concomitant]
     Dosage: 40MG PER DAY
     Route: 048
  6. LOTREL [Concomitant]
     Dates: start: 20080201
  7. GLUCOPHAGE [Concomitant]
     Dosage: 500MG TWICE PER DAY
     Route: 048
  8. LOVASTATIN [Concomitant]
     Dosage: 20MG PER DAY
     Route: 048
  9. VITAMIN E [Concomitant]
     Dosage: 200IU PER DAY
  10. ASCORBIC ACID [Concomitant]
     Dosage: 500MG PER DAY
     Route: 048
  11. ASPIRIN [Concomitant]
     Dosage: 81MG PER DAY
     Route: 048
  12. UNKNOWN MEDICATION [Concomitant]

REACTIONS (2)
  - CARDIAC FAILURE CONGESTIVE [None]
  - DRUG INEFFECTIVE [None]
